FAERS Safety Report 25068904 (Version 1)
Quarter: 2025Q1

REPORT INFORMATION
  Report Type: Spontaneous
  Country: US (occurrence: None)
  Receive Date: 20250312
  Receipt Date: 20250312
  Transmission Date: 20250408
  Serious: No
  Sender: FDA-CTU
  Company Number: None

PATIENT
  Age: 83 Year
  Sex: Male

DRUGS (1)
  1. PRIVIGEN [Suspect]
     Active Substance: HUMAN IMMUNOGLOBULIN G
     Dosage: OTHER FREQUENCY : MONTHLY;?
     Route: 042
     Dates: start: 20250305, end: 20250307

REACTIONS (3)
  - Actinic keratosis [None]
  - Condition aggravated [None]
  - Infusion related reaction [None]

NARRATIVE: CASE EVENT DATE: 20250305
